FAERS Safety Report 4818364-3 (Version None)
Quarter: 2005Q4

REPORT INFORMATION
  Report Type: 
  Country: None (occurrence: None)
  Receive Date: 20051031
  Receipt Date: 20051024
  Transmission Date: 20060501
  Serious: Yes (Hospitalization)
  Sender: FDA-Public Use
  Company Number: 2005-10-0301

PATIENT
  Age: 71 Year
  Sex: Male
  Weight: 66 kg

DRUGS (3)
  1. TEMODAL [Suspect]
     Indication: GLIOBLASTOMA
     Dosage: 75 MG/M^2 ORAL
     Route: 048
     Dates: start: 20050712, end: 20050802
  2. DEPAKINE CHRONO (SODIUM VALPROATE) TABLETS [Suspect]
     Dosage: 500 MG TID ORAL
     Route: 048
  3. RADIATION THERAPY [Concomitant]

REACTIONS (6)
  - ANAEMIA [None]
  - APHASIA [None]
  - CONFUSIONAL STATE [None]
  - HEMIPLEGIA [None]
  - NEUTROPENIA [None]
  - THROMBOCYTOPENIA [None]
